FAERS Safety Report 8309209-8 (Version None)
Quarter: 2012Q2

REPORT INFORMATION
  Report Type: 
  Country: None (occurrence: None)
  Receive Date: 20120424
  Receipt Date: 20120409
  Transmission Date: 20120825
  Serious: Yes (Other)
  Sender: FDA-Public Use
  Company Number: CHPA2012US009056

PATIENT
  Age: 86 Year
  Sex: Female

DRUGS (1)
  1. MAALOX ANTACID/ANTIGAS MAX LIQ UNKNOWN [Suspect]
     Indication: BURNING SENSATION
     Dosage: 3 TSP, PRN
     Route: 048

REACTIONS (3)
  - SINUSITIS [None]
  - THERAPEUTIC RESPONSE UNEXPECTED [None]
  - OFF LABEL USE [None]
